FAERS Safety Report 7537470-6 (Version None)
Quarter: 2011Q2

REPORT INFORMATION
  Report Type: 
  Country: None (occurrence: None)
  Receive Date: 20110609
  Receipt Date: 20110530
  Transmission Date: 20111010
  Serious: Yes (Other)
  Sender: FDA-Public Use
  Company Number: PHHY2011DE43507

PATIENT
  Sex: Female

DRUGS (5)
  1. ERGOCALCIFEROL [Concomitant]
     Dosage: 1000 IU, UNK
     Route: 048
     Dates: start: 20110419
  2. MCP ^HEXAL^ [Concomitant]
     Dosage: 100 MG, UNK
     Route: 048
     Dates: start: 20110420
  3. AMANTADINE HCL [Concomitant]
     Dosage: 100 MG, UNK
     Route: 048
     Dates: start: 20100324
  4. GILENYA [Suspect]
     Indication: MULTIPLE SCLEROSIS
     Dosage: 0.5 MG, PER DAY
     Route: 048
     Dates: start: 20110503
  5. CITALOPRAM HYDROBROMIDE [Concomitant]
     Dosage: 20 MG, UNK
     Route: 048
     Dates: start: 20100324

REACTIONS (8)
  - LIVER INJURY [None]
  - NAUSEA [None]
  - LEUKOPENIA [None]
  - GAMMA-GLUTAMYLTRANSFERASE INCREASED [None]
  - LYMPHOPENIA [None]
  - HEADACHE [None]
  - ALANINE AMINOTRANSFERASE INCREASED [None]
  - ASPARTATE AMINOTRANSFERASE INCREASED [None]
